FAERS Safety Report 6120629-2 (Version None)
Quarter: 2009Q1

REPORT INFORMATION
  Report Type: 
  Country: None (occurrence: None)
  Receive Date: 20090313
  Receipt Date: 20090302
  Transmission Date: 20090719
  Serious: Yes (Disabling, Other)
  Sender: FDA-Public Use
  Company Number: GXKR2009ES02825

PATIENT
  Age: 4 Year
  Sex: Male

DRUGS (2)
  1. CLARITHROMYCIN [Suspect]
     Indication: COUGH
     Dosage: 6 MG, BID, ORAL
     Route: 048
     Dates: start: 20081218, end: 20081219
  2. SEKISAN (CLOPERASTINE HYDROCHLORIDE HYDROCHLORIDE) SYRUP, 200ML [Suspect]
     Indication: COUGH
     Dosage: 24 ML, TID, ORAL
     Route: 048
     Dates: start: 20081218, end: 20081219

REACTIONS (1)
  - APHASIA [None]
